FAERS Safety Report 8523872-8 (Version None)
Quarter: 2012Q3

REPORT INFORMATION
  Report Type: 
  Country: None (occurrence: None)
  Receive Date: 20120720
  Receipt Date: 20120712
  Transmission Date: 20120928
  Serious: Yes (Hospitalization, Other)
  Sender: FDA-Public Use
  Company Number: US-RB-042395-12

PATIENT
  Age: 38 Year
  Sex: Female

DRUGS (2)
  1. SUBOXONE [Suspect]
     Indication: PRODUCT USED FOR UNKNOWN INDICATION
     Dosage: UNKNOWN DOSING DETAILS
     Route: 065
  2. SUBOXONE [Suspect]
     Dosage: UNKNOWN DOSING DETAILS
     Route: 065

REACTIONS (13)
  - INTERVERTEBRAL DISC PROTRUSION [None]
  - NERVE INJURY [None]
  - UNDERDOSE [None]
  - CARDIAC DISORDER [None]
  - OEDEMA PERIPHERAL [None]
  - DRUG INEFFECTIVE [None]
  - ROAD TRAFFIC ACCIDENT [None]
  - BACK INJURY [None]
  - CONSTIPATION [None]
  - INSOMNIA [None]
  - MALAISE [None]
  - IRRITABLE BOWEL SYNDROME [None]
  - DRUG ABUSE [None]
